FAERS Safety Report 14825672 (Version 3)
Quarter: 2018Q3

REPORT INFORMATION
  Report Type: Report from Study
  Country: US (occurrence: US)
  Receive Date: 20180430
  Receipt Date: 20180705
  Transmission Date: 20181010
  Serious: No
  Sender: FDA-Public Use
  Company Number: US-ROCHE-2012389

PATIENT
  Age: 48 Year
  Sex: Female
  Weight: 70.37 kg

DRUGS (3)
  1. OCREVUS [Suspect]
     Active Substance: OCRELIZUMAB
     Indication: RELAPSING MULTIPLE SCLEROSIS
     Dosage: FIRST INFUSION
     Route: 065
     Dates: start: 201010
  2. OCREVUS [Suspect]
     Active Substance: OCRELIZUMAB
     Dosage: FIRST INFUSION (SPLIT DOSE)
     Route: 065
     Dates: start: 20171002
  3. OCREVUS [Suspect]
     Active Substance: OCRELIZUMAB
     Dosage: SECOND INFUSION (SPLIT DOSE)
     Route: 065
     Dates: start: 20171022

REACTIONS (14)
  - Influenza [Recovered/Resolved]
  - Cough [Unknown]
  - Fatigue [Unknown]
  - Nausea [Unknown]
  - Nasopharyngitis [Recovered/Resolved]
  - Feeling hot [Unknown]
  - Rhinorrhoea [Recovered/Resolved]
  - Bronchospasm [Unknown]
  - Dizziness [Unknown]
  - Throat irritation [Unknown]
  - Palpitations [Unknown]
  - Oropharyngeal pain [Recovered/Resolved]
  - Headache [Unknown]
  - Sinus congestion [Unknown]

NARRATIVE: CASE EVENT DATE: 20171002
